FAERS Safety Report 14921698 (Version 1)
Quarter: 2018Q2

REPORT INFORMATION
  Report Type: Spontaneous
  Country: US (occurrence: US)
  Receive Date: 20180522
  Receipt Date: 20180522
  Transmission Date: 20180711
  Serious: Yes (Other)
  Sender: FDA-Public Use
  Company Number: US-ALEMBIC PHARMACUETICALS LIMITED-2018SCAL000348

PATIENT

DRUGS (1)
  1. ITRACONAZOLE. [Suspect]
     Active Substance: ITRACONAZOLE
     Indication: PRODUCT USED FOR UNKNOWN INDICATION
     Dosage: UNK

REACTIONS (5)
  - Renin decreased [Recovered/Resolved]
  - Apparent mineralocorticoid excess [Recovered/Resolved]
  - Metabolic alkalosis [Recovered/Resolved]
  - Hypertension [Recovered/Resolved]
  - Hypokalaemia [Recovered/Resolved]
